FAERS Safety Report 7918693-0 (Version None)
Quarter: 2011Q4

REPORT INFORMATION
  Report Type: 
  Country: None (occurrence: None)
  Receive Date: 20111116
  Receipt Date: 20111114
  Transmission Date: 20120403
  Serious: Yes (Hospitalization, Other)
  Sender: FDA-Public Use
  Company Number: NL-PFIZER INC-2011278050

PATIENT
  Age: 57 Year
  Sex: Female

DRUGS (1)
  1. LYRICA [Suspect]
     Indication: FACIAL PAIN
     Dosage: 50 MG ONCE WEEKLY
     Dates: start: 20111006

REACTIONS (5)
  - BLISTER [None]
  - AMNESIA [None]
  - LOSS OF CONSCIOUSNESS [None]
  - TREMOR [None]
  - LISTLESS [None]
